FAERS Safety Report 6667075-0 (Version None)
Quarter: 2010Q2

REPORT INFORMATION
  Report Type: 
  Country: None (occurrence: None)
  Receive Date: 20100402
  Receipt Date: 20100402
  Transmission Date: 20101027
  Serious: Yes (Hospitalization)
  Sender: FDA-Public Use
  Company Number: None

PATIENT
  Age: 73 Year
  Sex: Female
  Weight: 43.5453 kg

DRUGS (2)
  1. RISEDRONATE SODIUM (ACTONEL) [Suspect]
     Indication: OSTEOPOROSIS
  2. NORVASC [Concomitant]

REACTIONS (3)
  - FALL [None]
  - FEMUR FRACTURE [None]
  - STRESS FRACTURE [None]
